FAERS Safety Report 6180871-1 (Version None)
Quarter: 2009Q2

REPORT INFORMATION
  Report Type: 
  Country: None (occurrence: None)
  Receive Date: 20090506
  Receipt Date: 20090427
  Transmission Date: 20091009
  Serious: Yes (Death)
  Sender: FDA-Public Use
  Company Number: US-BAYER-200910731NA

PATIENT
  Age: 62 Year
  Sex: Male

DRUGS (5)
  1. FLUDARABINE [Suspect]
     Indication: ACUTE MYELOID LEUKAEMIA
  2. VELCADE [Suspect]
     Indication: ACUTE MYELOID LEUKAEMIA
  3. CYCLOPHOSPHAMIDE [Suspect]
     Indication: ACUTE MYELOID LEUKAEMIA
  4. PROLEUKIN [Suspect]
     Indication: ACUTE MYELOID LEUKAEMIA
  5. THYMOGLOBULIN [Suspect]
     Indication: ACUTE MYELOID LEUKAEMIA

REACTIONS (2)
  - ENTEROCOCCAL SEPSIS [None]
  - VENOOCCLUSIVE LIVER DISEASE [None]
